FAERS Safety Report 8079109-X (Version None)
Quarter: 2012Q1

REPORT INFORMATION
  Report Type: 
  Country: None (occurrence: None)
  Receive Date: 20120128
  Receipt Date: 20110818
  Transmission Date: 20120608
  Serious: No
  Sender: FDA-Public Use
  Company Number: US-ABBOTT-11P-163-0847718-00

PATIENT
  Age: 62 Year
  Sex: Male

DRUGS (17)
  1. ZINC SULFATE [Concomitant]
     Indication: PRODUCT USED FOR UNKNOWN INDICATION
  2. AMBIEN CR [Concomitant]
     Indication: PRODUCT USED FOR UNKNOWN INDICATION
     Dosage: AT BEDTIME
  3. LOTREL [Concomitant]
     Indication: BLOOD PRESSURE
     Dosage: 10/40MG DAILY
  4. ZYPREXA [Concomitant]
     Indication: PRODUCT USED FOR UNKNOWN INDICATION
  5. MULTI-VITAMINS [Concomitant]
     Indication: PRODUCT USED FOR UNKNOWN INDICATION
     Dosage: DAILY
  6. CLOTRIMAZOLE [Concomitant]
     Indication: PRODUCT USED FOR UNKNOWN INDICATION
  7. RESTASIS [Concomitant]
     Indication: PRODUCT USED FOR UNKNOWN INDICATION
     Dosage: DAILY, BOTH EYES TOGETHER
  8. PREDNISONE TAB [Suspect]
     Indication: COLITIS ULCERATIVE
     Dosage: UNKNOWN
  9. VESICARE [Concomitant]
     Indication: BLADDER DISORDER
  10. LAMICTAL [Concomitant]
     Indication: AFFECTIVE DISORDER
  11. HUMIRA [Suspect]
     Indication: COLITIS ULCERATIVE
     Dates: start: 20110521
  12. APRISO [Concomitant]
     Indication: COLITIS
     Dosage: SIX TABLETS DAILY
  13. MESALAMINE [Concomitant]
     Indication: COLITIS
     Dosage: AT BEDTIME
  14. PRILOSEC [Concomitant]
     Indication: PRODUCT USED FOR UNKNOWN INDICATION
  15. FLOMAX [Concomitant]
     Indication: PROSTATIC DISORDER
  16. XANAX [Concomitant]
     Indication: PRODUCT USED FOR UNKNOWN INDICATION
  17. KLOR-CON [Concomitant]
     Indication: PRODUCT USED FOR UNKNOWN INDICATION

REACTIONS (5)
  - ILL-DEFINED DISORDER [None]
  - EMPHYSEMA [None]
  - DYSPNOEA [None]
  - CHRONIC OBSTRUCTIVE PULMONARY DISEASE [None]
  - GAIT DISTURBANCE [None]
